FAERS Safety Report 9163184 (Version 2)
Quarter: 2013Q2

REPORT INFORMATION
  Report Type: Spontaneous
  Country: GB (occurrence: None)
  Receive Date: 20130221
  Receipt Date: 20130404
  Transmission Date: 20140414
  Serious: Yes (Other)
  Sender: FDA-Public Use
  Company Number: 2013AP002654

PATIENT
  Age: 58 Year
  Sex: Male

DRUGS (1)
  1. MYCOPHENOLATE MOFETIL (MYCOPHENOLATE MOFETIL) [Suspect]
     Indication: IMMUNOSUPPRESSANT DRUG THERAPY

REACTIONS (4)
  - Nocardiosis [None]
  - Breath sounds abnormal [None]
  - Abdominal mass [None]
  - Tremor [None]
